FAERS Safety Report 10518582 (Version 3)
Quarter: 2014Q4

REPORT INFORMATION
  Report Type: Report from Study
  Country: US (occurrence: US)
  Receive Date: 20141015
  Receipt Date: 20141015
  Transmission Date: 20150528
  Serious: Yes (Other)
  Sender: FDA-Public Use
  Company Number: US-LEO PHARMA-222955

PATIENT
  Age: 55 Year
  Sex: Male

DRUGS (1)
  1. PICATO [Suspect]
     Active Substance: INGENOL MEBUTATE
     Indication: ACTINIC KERATOSIS
     Route: 061
     Dates: start: 20130725, end: 20130727

REACTIONS (12)
  - Rhinorrhoea [Unknown]
  - Eye pruritus [Unknown]
  - Photophobia [Not Recovered/Not Resolved]
  - Abnormal sensation in eye [Not Recovered/Not Resolved]
  - Eye swelling [Unknown]
  - Chemical eye injury [Unknown]
  - Vision blurred [Recovered/Resolved]
  - Retinal disorder [Unknown]
  - Lacrimation increased [Unknown]
  - Eye irritation [Unknown]
  - Accidental exposure to product [Not Recovered/Not Resolved]
  - Eye disorder [Not Recovered/Not Resolved]

NARRATIVE: CASE EVENT DATE: 20130726
